FAERS Safety Report 7620795-3 (Version None)
Quarter: 2011Q3

REPORT INFORMATION
  Report Type: 
  Country: None (occurrence: None)
  Receive Date: 20110719
  Receipt Date: 20110708
  Transmission Date: 20111222
  Serious: Yes (Hospitalization)
  Sender: FDA-Public Use
  Company Number: GXKR2011DE02231

PATIENT
  Age: 58 Year
  Sex: Male

DRUGS (16)
  1. SERTRALINE HYDROCHLORIDE [Suspect]
     Dosage: 200 MG, QD
     Route: 048
     Dates: start: 20100713, end: 20100804
  2. SEROQUEL [Suspect]
     Dosage: 200-600 MG DAILY
     Route: 048
     Dates: start: 20100522, end: 20100602
  3. AKINETON [Suspect]
     Dosage: 2 MG, QD
     Route: 048
     Dates: start: 20100625, end: 20100709
  4. SEROQUEL [Suspect]
     Dosage: 600 MG - 100 MG DAILY
     Route: 048
     Dates: start: 20100805, end: 20100811
  5. SEROQUEL [Suspect]
     Dosage: 300 MG, QD
     Route: 048
     Dates: start: 20100602, end: 20100622
  6. SEROQUEL [Suspect]
     Dosage: 400 MG - 600 MG DAILY
     Route: 048
     Dates: start: 20100622, end: 20100627
  7. AKINETON [Suspect]
     Dosage: 4 MG, QD
     Route: 048
     Dates: start: 20100710
  8. DIAZEPAM [Concomitant]
     Dosage: 10 MG, QD
     Route: 048
     Dates: start: 20100624, end: 20100715
  9. SERTRALINE HYDROCHLORIDE [Suspect]
     Dosage: 100 MG, QD
     Route: 048
     Dates: start: 20100807
  10. SEROQUEL [Suspect]
     Dosage: 800 MG, QD
     Route: 048
     Dates: start: 20100628, end: 20100804
  11. DIAZEPAM [Concomitant]
     Dosage: 5 MG, QD
     Route: 048
     Dates: start: 20100716, end: 20100719
  12. SERTRALINE HYDROCHLORIDE [Suspect]
     Dosage: 50 MG, QD
     Route: 048
     Dates: start: 20100527, end: 20100608
  13. SERTRALINE HYDROCHLORIDE [Suspect]
     Dosage: 150 MG, QD
     Route: 048
     Dates: start: 20100805, end: 20100806
  14. SERTRALINE HYDROCHLORIDE [Suspect]
     Dosage: 150 MG, QD
     Route: 048
     Dates: start: 20100708, end: 20100712
  15. SERTRALINE HYDROCHLORIDE [Suspect]
     Dosage: 100 MG, QD
     Route: 048
     Dates: start: 20100609, end: 20100707
  16. DIAZEPAM [Concomitant]
     Dosage: 2.5 MG, QD
     Route: 048
     Dates: start: 20100720, end: 20100804

REACTIONS (1)
  - DELIRIUM [None]
